FAERS Safety Report 10221124 (Version 1)
Quarter: 2014Q1

REPORT INFORMATION
  Report Type: Spontaneous
  Country: US (occurrence: None)
  Receive Date: 20140306
  Receipt Date: 20140306
  Transmission Date: 20141002
  Serious: Yes (Other)
  Sender: FDA-Public Use
  Company Number: 163-21880-13062798

PATIENT
  Age: 59 Year
  Sex: Male

DRUGS (3)
  1. REVLIMID (LENALIDOMIDE) [Suspect]
     Indication: PLASMA CELL MYELOMA
     Dosage: 21 IN 21 D
     Route: 048
     Dates: start: 20121003, end: 20130610
  2. NEUROTRONIN (GABAPENTIN) (UNKNOWN) [Concomitant]
  3. HYDROCODONE (HYDROCODONE) [Concomitant]

REACTIONS (4)
  - Eye pruritus [None]
  - Lacrimation increased [None]
  - Dyspnoea [None]
  - Cough [None]
